FAERS Safety Report 7050501-5 (Version None)
Quarter: 2010Q4

REPORT INFORMATION
  Report Type: 
  Country: None (occurrence: None)
  Receive Date: 20101018
  Receipt Date: 20101011
  Transmission Date: 20110411
  Serious: Yes (Hospitalization)
  Sender: FDA-Public Use
  Company Number: US-US-EMD SERONO, INC.-7018149

PATIENT
  Sex: Female

DRUGS (10)
  1. REBIF [Suspect]
     Indication: MULTIPLE SCLEROSIS
     Route: 058
     Dates: start: 20030101
  2. LEXAPRO [Concomitant]
  3. WELLBUTRIN [Concomitant]
  4. LISINOPRIL [Concomitant]
  5. TYLENOL-500 [Concomitant]
  6. VALIUM [Concomitant]
  7. NEURONTIN [Concomitant]
  8. ASPIRIN [Concomitant]
  9. CARVEDILOL [Concomitant]
  10. LASIX [Concomitant]

REACTIONS (6)
  - DIARRHOEA [None]
  - HYPOAESTHESIA [None]
  - NAUSEA [None]
  - STRESS [None]
  - TREMOR [None]
  - VOMITING [None]
